FAERS Safety Report 21371917 (Version 1)
Quarter: 2022Q3

REPORT INFORMATION
  Report Type: Spontaneous
  Country: US (occurrence: US)
  Receive Date: 20220923
  Receipt Date: 20220923
  Transmission Date: 20221027
  Serious: Yes (Other)
  Sender: FDA-Public Use
  Company Number: US-TEVA-2022-US-2074592

PATIENT
  Age: 67 Year
  Sex: Female

DRUGS (7)
  1. DILTIAZEM HYDROCHLORIDE [Suspect]
     Active Substance: DILTIAZEM HYDROCHLORIDE
     Indication: Atrial fibrillation
     Dosage: 60 MILLIGRAM DAILY;
     Route: 065
  2. LORAZEPAM [Concomitant]
     Active Substance: LORAZEPAM
     Indication: Anxiety
  3. SYNTHROID [Concomitant]
     Active Substance: LEVOTHYROXINE SODIUM
     Indication: Hypothyroidism
  4. NEXIUM [Concomitant]
     Active Substance: ESOMEPRAZOLE MAGNESIUM
     Indication: Gastrooesophageal reflux disease
  5. PROGESTERONE [Concomitant]
     Active Substance: PROGESTERONE
     Indication: Product used for unknown indication
  6. XARELTO [Concomitant]
     Active Substance: RIVAROXABAN
     Indication: Product used for unknown indication
  7. PROBIOTICS NOS [Concomitant]
     Active Substance: PROBIOTICS NOS
     Indication: Product used for unknown indication

REACTIONS (18)
  - Haemorrhage [Unknown]
  - Loss of consciousness [Unknown]
  - Insomnia [Unknown]
  - Rash [Unknown]
  - Dizziness [Unknown]
  - Enzyme abnormality [Unknown]
  - Drug intolerance [Unknown]
  - Panic disorder [Unknown]
  - Fatigue [Unknown]
  - Lethargy [Unknown]
  - Adrenal disorder [Unknown]
  - Blood pressure fluctuation [Unknown]
  - Irritable bowel syndrome [Unknown]
  - Constipation [Unknown]
  - Tremor [Unknown]
  - Headache [Unknown]
  - Photosensitivity reaction [Unknown]
  - Adverse drug reaction [Unknown]

NARRATIVE: CASE EVENT DATE: 20220201
